FAERS Safety Report 8444208-7 (Version None)
Quarter: 2012Q2

REPORT INFORMATION
  Report Type: 
  Country: None (occurrence: None)
  Receive Date: 20120611
  Receipt Date: 20120530
  Transmission Date: 20120825
  Serious: Yes (Other)
  Sender: FDA-Public Use
  Company Number: AUR-APL-2012-02030

PATIENT
  Age: 81 Year
  Sex: Female
  Weight: 68.0396 kg

DRUGS (6)
  1. PLAVIX [Concomitant]
  2. OMEGA 3 (LIPITAC) [Concomitant]
  3. CALCIUM CARBONATE [Concomitant]
  4. HYDROCHLOROTHIAZIDE [Concomitant]
  5. ACETAMINOPHEN [Concomitant]
  6. ALENDRONIC ACID (ALENDRONIC ACID) [Suspect]
     Indication: OSTEOPOROSIS
     Dosage: (1 DOSAGE FORMS, 1 IN 1 WK), ORAL
     Route: 048
     Dates: start: 20120330, end: 20120422

REACTIONS (8)
  - GAIT DISTURBANCE [None]
  - DYSSTASIA [None]
  - HYPOPHAGIA [None]
  - PAIN IN EXTREMITY [None]
  - TREMOR [None]
  - WALKING AID USER [None]
  - CHOKING [None]
  - FEELING ABNORMAL [None]
